FAERS Safety Report 9840214 (Version 1)
Quarter: 2014Q1

REPORT INFORMATION
  Report Type: Spontaneous
  Country: FR (occurrence: FR)
  Receive Date: 20140124
  Receipt Date: 20140124
  Transmission Date: 20141002
  Serious: Yes (Hospitalization)
  Sender: FDA-Public Use
  Company Number: FR-JNJFOC-20140112259

PATIENT
  Age: 73 Year
  Sex: Female

DRUGS (9)
  1. XARELTO [Suspect]
     Indication: PRODUCT USED FOR UNKNOWN INDICATION
     Route: 048
     Dates: start: 201307, end: 20131210
  2. IMOVANE [Concomitant]
     Route: 065
  3. ATARAX [Concomitant]
     Route: 065
  4. LEDERFOLINE [Concomitant]
     Route: 065
     Dates: start: 201307
  5. COZAAR [Concomitant]
     Route: 065
  6. INEXIUM [Concomitant]
     Route: 065
  7. TOPALGIC [TRAMADOL HYDROCHLORIDE] [Concomitant]
     Route: 065
  8. SEROPRAM [Concomitant]
     Route: 065
  9. LYRICA [Concomitant]
     Route: 065

REACTIONS (2)
  - Cerebrovascular accident [Recovered/Resolved with Sequelae]
  - Drug ineffective [Recovered/Resolved]
